FAERS Safety Report 10056334 (Version 1)
Quarter: 2014Q2

REPORT INFORMATION
  Report Type: Spontaneous
  Country: CA (occurrence: CA)
  Receive Date: 20140403
  Receipt Date: 20140403
  Transmission Date: 20141212
  Serious: Yes (Hospitalization, Other)
  Sender: FDA-Public Use
  Company Number: CA-AMGEN INC.-CANSP2014022269

PATIENT
  Age: 39 Year
  Sex: Female

DRUGS (6)
  1. ARANESP [Suspect]
     Indication: RENAL FAILURE CHRONIC
     Dosage: 80 MUG, UNK
     Route: 065
     Dates: start: 20120101
  2. CALCIUM [Concomitant]
  3. VITAMIN D                          /00107901/ [Concomitant]
     Dosage: UNK UNK, QWK
  4. PRAVASTATIN [Concomitant]
  5. PANTOLOC                           /01263204/ [Concomitant]
  6. LASIX                              /00032601/ [Concomitant]
     Dosage: 40 MG, BID

REACTIONS (15)
  - Paralysis [Unknown]
  - Weight decreased [Unknown]
  - Blood pressure increased [Unknown]
  - Haemoglobin decreased [Recovered/Resolved]
  - Migraine [Unknown]
  - Dysmyelination [Unknown]
  - Gait disturbance [Unknown]
  - Eating disorder [Unknown]
  - Clostridium difficile infection [Unknown]
  - Influenza [Unknown]
  - Insertion of ambulatory peritoneal catheter [Unknown]
  - Haemodialysis [Unknown]
  - Fatigue [Unknown]
  - Abdominal discomfort [Unknown]
  - Constipation [Unknown]
